FAERS Safety Report 21955969 (Version 1)
Quarter: 2023Q1

REPORT INFORMATION
  Report Type: Report from Study
  Country: CA (occurrence: CA)
  Receive Date: 20230206
  Receipt Date: 20230206
  Transmission Date: 20230418
  Serious: Yes (Death)
  Sender: FDA-Public Use
  Company Number: CA-BAUSCH-BL-2020-015699

PATIENT
  Age: 66 Year
  Sex: Female

DRUGS (2)
  1. SILIQ [Suspect]
     Active Substance: BRODALUMAB
     Indication: Psoriasis
     Dosage: 210 MG/1.5 ML, WEEKLY, FOR WEEK 0, 1 AND 2
     Route: 058
     Dates: start: 20200519, end: 202006
  2. SILIQ [Suspect]
     Active Substance: BRODALUMAB
     Dosage: 210 MG/1.5 ML, Q 2 WEEKS
     Route: 058

REACTIONS (4)
  - Death [Fatal]
  - Gouty arthritis [Recovering/Resolving]
  - Condition aggravated [Recovering/Resolving]
  - Therapeutic product effect incomplete [Unknown]

NARRATIVE: CASE EVENT DATE: 20200524
